FAERS Safety Report 4515534-9 (Version None)
Quarter: 2004Q4

REPORT INFORMATION
  Report Type: 
  Country: None (occurrence: None)
  Receive Date: 20041126
  Receipt Date: 20041112
  Transmission Date: 20050328
  Serious: Yes (Hospitalization)
  Sender: FDA-Public Use
  Company Number: 113939

PATIENT
  Age: 48 Year
  Sex: Female
  Weight: 45.3597 kg

DRUGS (5)
  1. AVONEX [Suspect]
     Indication: MULTIPLE SCLEROSIS
     Dosage: 30 UG; QW; IM
     Route: 030
     Dates: start: 19970101
  2. PREVACID [Concomitant]
  3. ZANAFLEX [Concomitant]
  4. DALMANE [Concomitant]
  5. CYLERT [Concomitant]

REACTIONS (16)
  - CYSTITIS [None]
  - DEHYDRATION [None]
  - DYSPHAGIA [None]
  - FACE OEDEMA [None]
  - GASTRINOMA [None]
  - HIATUS HERNIA [None]
  - INFLUENZA LIKE ILLNESS [None]
  - PANCREATITIS [None]
  - PEPTIC ULCER [None]
  - PLEURISY [None]
  - POST PROCEDURAL COMPLICATION [None]
  - SPEECH DISORDER [None]
  - STAPHYLOCOCCAL INFECTION [None]
  - SWELLING [None]
  - THROMBOSIS [None]
  - VEIN DISORDER [None]
